FAERS Safety Report 5160293-2 (Version None)
Quarter: 2006Q4

REPORT INFORMATION
  Report Type: 
  Country: None (occurrence: None)
  Receive Date: 20061129
  Receipt Date: 20061120
  Transmission Date: 20070319
  Serious: Yes (Hospitalization)
  Sender: FDA-Public Use
  Company Number: FR-GLAXOSMITHKLINE-B0447988A

PATIENT
  Age: 64 Year
  Sex: Male
  Weight: 69 kg

DRUGS (2)
  1. AUGMENTIN '125' [Suspect]
     Route: 042
  2. FLAGYL [Suspect]
     Route: 042

REACTIONS (12)
  - BIOPSY LIVER ABNORMAL [None]
  - BLOOD ALKALINE PHOSPHATASE INCREASED [None]
  - BLOOD PHOSPHORUS INCREASED [None]
  - CHILLS [None]
  - CHOLESTASIS [None]
  - GAMMA-GLUTAMYLTRANSFERASE INCREASED [None]
  - HAPTOGLOBIN INCREASED [None]
  - HEPATIC STEATOSIS [None]
  - INFLAMMATION [None]
  - MONOCYTOSIS [None]
  - NORMOCHROMIC NORMOCYTIC ANAEMIA [None]
  - PYREXIA [None]
